FAERS Safety Report 24969111 (Version 1)
Quarter: 2025Q1

REPORT INFORMATION
  Report Type: Spontaneous
  Country: RO (occurrence: RO)
  Receive Date: 20250214
  Receipt Date: 20250214
  Transmission Date: 20250408
  Serious: Yes (Death)
  Sender: AMGEN
  Company Number: RO-AMGEN-ROUSP2025027351

PATIENT
  Age: 68 Year
  Sex: Male

DRUGS (4)
  1. KYPROLIS [Suspect]
     Active Substance: CARFILZOMIB
     Indication: Plasma cell myeloma
     Route: 040
  2. KYPROLIS [Suspect]
     Active Substance: CARFILZOMIB
     Route: 040
     Dates: end: 202412
  3. LENALIDOMIDE [Concomitant]
     Active Substance: LENALIDOMIDE
     Indication: Plasma cell myeloma
     Dosage: 25 MILLIGRAM, QD (CYCLE 1 OF 28 DAYS, THEN 15 MG/2 DAYS)
     Dates: start: 202410, end: 202412
  4. DEXAMETHASONE [Concomitant]
     Active Substance: DEXAMETHASONE
     Indication: Plasma cell myeloma
     Dosage: 40 MILLIGRAM, QWK (THEN 20 MG/WEEK)
     Dates: start: 202410, end: 202412

REACTIONS (1)
  - Cardiac arrest [Fatal]
